FAERS Safety Report 4868827-X (Version None)
Quarter: 2005Q4

REPORT INFORMATION
  Report Type: 
  Country: None (occurrence: None)
  Receive Date: 20051223
  Receipt Date: 20051208
  Transmission Date: 20060501
  Serious: Yes (Other)
  Sender: FDA-Public Use
  Company Number: FR200512001500

PATIENT
  Age: 63 Year
  Sex: Female

DRUGS (2)
  1. GEMZAR [Suspect]
     Indication: BREAST CANCER
     Dosage: OTHER, INTRAVENOUS
     Route: 042
     Dates: start: 20050101
  2. CISPLATIN [Concomitant]

REACTIONS (1)
  - SKIN NECROSIS [None]
